FAERS Safety Report 9587905 (Version 1)
Quarter: 2013Q4

REPORT INFORMATION
  Report Type: Spontaneous
  Country: SV (occurrence: SV)
  Receive Date: 20131003
  Receipt Date: 20131003
  Transmission Date: 20140711
  Serious: Yes (Hospitalization)
  Sender: FDA-Public Use
  Company Number: SV-GLAXOSMITHKLINE-A1044057A

PATIENT
  Age: 14 Month
  Sex: Male

DRUGS (1)
  1. ZINNAT [Suspect]
     Indication: PRODUCT USED FOR UNKNOWN INDICATION
     Dosage: 150MGKD UNKNOWN
     Route: 042
     Dates: start: 20130722, end: 20130723

REACTIONS (2)
  - Diarrhoea [Recovered/Resolved]
  - Dehydration [Recovered/Resolved]
